FAERS Safety Report 18119103 (Version 1)
Quarter: 2020Q3

REPORT INFORMATION
  Report Type: Spontaneous
  Country: US (occurrence: US)
  Receive Date: 20200806
  Receipt Date: 20200806
  Transmission Date: 20201103
  Serious: Yes (Disabling)
  Sender: FDA-Public Use
  Company Number: None

PATIENT
  Age: 70 Year
  Sex: Male
  Weight: 96.75 kg

DRUGS (4)
  1. GEMFIBROZIL. [Concomitant]
     Active Substance: GEMFIBROZIL
  2. COLESEVELAM HYDROCHLORIDE TABLETS [Suspect]
     Active Substance: COLESEVELAM HYDROCHLORIDE
     Indication: BLOOD CHOLESTEROL ABNORMAL
     Dosage: ?          QUANTITY:3 TABLET(S);?
     Route: 048
     Dates: start: 20200728, end: 20200805
  3. IBUPROFEN. [Concomitant]
     Active Substance: IBUPROFEN
  4. CPAP [Concomitant]
     Active Substance: DEVICE

REACTIONS (8)
  - Tremor [None]
  - Product substitution issue [None]
  - Product formulation issue [None]
  - Taste disorder [None]
  - Muscular weakness [None]
  - Product odour abnormal [None]
  - Fatigue [None]
  - Product contamination [None]

NARRATIVE: CASE EVENT DATE: 20200728
